FAERS Safety Report 7946314-X (Version None)
Quarter: 2011Q4

REPORT INFORMATION
  Report Type: 
  Country: None (occurrence: None)
  Receive Date: 20111122
  Receipt Date: 20111116
  Transmission Date: 20120403
  Serious: Yes (Hospitalization)
  Sender: FDA-Public Use
  Company Number: 2011SP053979

PATIENT
  Age: 47 Year
  Sex: Male

DRUGS (2)
  1. PEGETRON (PEGYLATED INTERFERON ALFA-2B W/RIBAVIRIN) [Suspect]
     Indication: HEPATITIS C
     Dosage: 120 MCG; SC
     Route: 058
  2. VICTRELIS [Suspect]
     Indication: HEPATITIS C
     Dosage: 200 MG; PO
     Route: 048

REACTIONS (1)
  - URINARY TRACT INFECTION [None]
